FAERS Safety Report 8563877-4 (Version None)
Quarter: 2012Q3

REPORT INFORMATION
  Report Type: 
  Country: None (occurrence: None)
  Receive Date: 20120718
  Receipt Date: 20120710
  Transmission Date: 20120928
  Serious: Yes (Hospitalization)
  Sender: FDA-Public Use
  Company Number: 2012031104

PATIENT
  Age: 52 Year
  Sex: Female
  Weight: 47.6277 kg

DRUGS (28)
  1. PROBIOTIC (LACTOBACILLUS ACIDOPHILUS) [Concomitant]
  2. KADIAN [Concomitant]
  3. DIPHENHYDRAMINE HCL [Concomitant]
  4. DIFLUCAN [Concomitant]
  5. EPIPEN [Concomitant]
  6. VERAMYST (FLUTICASONE) [Concomitant]
  7. AUGMENTIN '500' [Concomitant]
  8. XANAX [Concomitant]
  9. NORCO [Concomitant]
  10. OMEPRAZOLE [Concomitant]
  11. SINGULAIR [Concomitant]
  12. PREVACID [Concomitant]
  13. SYNTHROID [Concomitant]
  14. LIDOCAINE/PRILOCAINE (EMLA) [Concomitant]
  15. LMX (LIDOCAINE) [Concomitant]
  16. XOPENEX [Concomitant]
  17. HIZENTRA [Suspect]
     Indication: IMMUNODEFICIENCY COMMON VARIABLE
     Dosage: 8 G 1X/WEEK, MULTIPLE SITES OVER 1 - 2 HOURS SUBCUTANEOUS;
     Dates: start: 20120207, end: 20120207
  18. SOMA [Concomitant]
  19. COMBIVENT [Concomitant]
  20. OMNARIS (CICLESONIDE) [Concomitant]
  21. NASACORT [Concomitant]
  22. HIZENTRA [Suspect]
     Indication: HUMORAL IMMUNE DEFECT
     Dosage: 8 G 1X/WEEK, MULTIPLE SITES OVER 1 - 2 HOURS SUBCUTANEOUS
     Route: 058
     Dates: start: 20120623, end: 20120624
  23. HIZENTRA [Suspect]
     Indication: IMMUNODEFICIENCY COMMON VARIABLE
     Dosage: 8 G 1X/WEEK, MULTIPLE SITES OVER 1 - 2 HOURS SUBCUTANEOUS
     Route: 058
     Dates: start: 20120623, end: 20120624
  24. COENZYME (UBIDECARENONE) [Concomitant]
  25. FIORICET (AXOTAL) [Concomitant]
  26. MULTI-VITAMIN [Concomitant]
  27. ASCORBIC ACID [Concomitant]
  28. MEDROL DOSEPAK (METHYLPREDNISOLONE) [Concomitant]

REACTIONS (3)
  - UPPER RESPIRATORY TRACT INFECTION [None]
  - HEADACHE [None]
  - CONVULSION [None]
